FAERS Safety Report 7583580-7 (Version None)
Quarter: 2011Q2

REPORT INFORMATION
  Report Type: 
  Country: None (occurrence: None)
  Receive Date: 20110527
  Receipt Date: 20101004
  Transmission Date: 20111010
  Serious: Yes (Hospitalization, Other)
  Sender: FDA-Public Use
  Company Number: US201002003456

PATIENT
  Sex: Female
  Weight: 86.6 kg

DRUGS (5)
  1. SYNTHROID [Concomitant]
  2. EXENATIDE PEN (EXENATIDE PEN) [Concomitant]
  3. ZETIA [Concomitant]
  4. JANUMET [Concomitant]
  5. BYETTA [Suspect]
     Dates: start: 20090116, end: 20090201

REACTIONS (1)
  - PANCREATITIS ACUTE [None]
